FAERS Safety Report 4715603-4 (Version None)
Quarter: 2005Q3

REPORT INFORMATION
  Report Type: 
  Country: None (occurrence: None)
  Receive Date: 20050713
  Receipt Date: 20050322
  Transmission Date: 20060218
  Serious: Yes (Hospitalization)
  Sender: FDA-Public Use
  Company Number: 2005FR-00084

PATIENT
  Age: 84 Year
  Sex: Male

DRUGS (2)
  1. ASPIRIN [Suspect]
     Dosage: 75 MG, ORAL
     Route: 048
     Dates: start: 20030227, end: 20050301
  2. TRAZODONE HCL [Concomitant]

REACTIONS (3)
  - CONVULSION [None]
  - HAEMATEMESIS [None]
  - MELAENA [None]
